FAERS Safety Report 9844821 (Version 3)
Quarter: 2014Q4

REPORT INFORMATION
  Report Type: Spontaneous
  Country: MX (occurrence: None)
  Receive Date: 20140122
  Receipt Date: 20141114
  Transmission Date: 20150529
  Serious: Yes (Other)
  Sender: FDA-Public Use
  Company Number: KAD201401-000049

PATIENT
  Age: 40 Year
  Sex: Male

DRUGS (5)
  1. BMS 91414 - INVESTIGATIONAL (PEGINTERFERON LAMBDA-1A) [Suspect]
     Active Substance: PEGINTERFERON LAMBDA-1A
     Indication: CHRONIC HEPATITIS C
     Route: 058
     Dates: start: 20130724, end: 20130807
  2. URSOFALK (URSODEOXYCHOLIC ACID) [Concomitant]
  3. RIBAVIRIN. [Suspect]
     Active Substance: RIBAVIRIN
     Indication: CHRONIC HEPATITIS C
     Route: 048
     Dates: start: 20130724, end: 20130802
  4. ALPRAZOLAM (ALPRAZOLAM) [Concomitant]
     Active Substance: ALPRAZOLAM
  5. COLESTYRAMINE (CHOLESTYRAMINE RESIN) [Concomitant]

REACTIONS (12)
  - Vomiting [None]
  - Ocular hyperaemia [None]
  - Somnolence [None]
  - Dyspnoea [None]
  - Red blood cell count increased [None]
  - Lethargy [None]
  - Blood glucose increased [None]
  - Haematocrit increased [None]
  - Hepatitis acute [None]
  - Headache [None]
  - Reticulocyte count decreased [None]
  - Hepatic pain [None]
